FAERS Safety Report 9156873 (Version 1)
Quarter: 2013Q1

REPORT INFORMATION
  Report Type: Spontaneous
  Country: US (occurrence: None)
  Receive Date: 20130308
  Receipt Date: 20130308
  Transmission Date: 20140127
  Serious: Yes (Hospitalization)
  Sender: FDA-Public Use
  Company Number: None

PATIENT
  Age: 86 Year
  Sex: Male
  Weight: 108.2 kg

DRUGS (1)
  1. BUMETANIDE [Suspect]
     Indication: OEDEMA
     Dosage: 1 MG  EVERY DAY PO
     Route: 048
     Dates: start: 20120828, end: 20130228

REACTIONS (2)
  - Renal failure acute [None]
  - Diarrhoea [None]
